FAERS Safety Report 20611188 (Version 1)
Quarter: 2022Q1

REPORT INFORMATION
  Report Type: Spontaneous
  Country: US (occurrence: US)
  Receive Date: 20220318
  Receipt Date: 20220318
  Transmission Date: 20220423
  Serious: No
  Sender: FDA-Public Use
  Company Number: US-GILEAD-2022-0574105

PATIENT
  Age: 73 Year
  Sex: Male
  Weight: 170 kg

DRUGS (3)
  1. AMBRISENTAN [Suspect]
     Active Substance: AMBRISENTAN
     Indication: Product used for unknown indication
     Route: 065
  2. ORENITRAM [Suspect]
     Active Substance: TREPROSTINIL
     Indication: Pulmonary arterial hypertension
     Dosage: 0.25 MG, TID
     Route: 048
     Dates: start: 20211101
  3. TADALAFIL [Concomitant]
     Active Substance: TADALAFIL

REACTIONS (3)
  - Hepatic enzyme increased [Unknown]
  - Hepatic steatosis [Unknown]
  - Dizziness [Unknown]
